FAERS Safety Report 10632636 (Version 1)
Quarter: 2014Q4

REPORT INFORMATION
  Report Type: Spontaneous
  Country: US (occurrence: US)
  Receive Date: 20141205
  Receipt Date: 20141205
  Transmission Date: 20150529
  Serious: No
  Sender: FDA-Public Use
  Company Number: US-BRISTOL-MYERS SQUIBB COMPANY-21161609

PATIENT
  Age: 66 Year
  Sex: Male
  Weight: 79.36 kg

DRUGS (4)
  1. LANTUS [Concomitant]
     Active Substance: INSULIN GLARGINE
  2. BYETTA [Suspect]
     Active Substance: EXENATIDE
     Indication: TYPE 2 DIABETES MELLITUS
     Dosage: INITIALLY 5MCG PEN?10MCG PEN
     Dates: start: 2007
  3. METFORMIN [Concomitant]
     Active Substance: METFORMIN HYDROCHLORIDE
     Dosage: 1DF=1000 UNITS NOS
  4. INSULIN [Concomitant]
     Active Substance: INSULIN NOS
     Dosage: 1DF=30 UNITS

REACTIONS (3)
  - Nausea [Unknown]
  - Vomiting [Unknown]
  - Weight decreased [Unknown]
